FAERS Safety Report 7240944-9 (Version None)
Quarter: 2011Q1

REPORT INFORMATION
  Report Type: 
  Country: None (occurrence: None)
  Receive Date: 20110120
  Receipt Date: 20110120
  Transmission Date: 20110831
  Serious: Yes (Life-Threatening)
  Sender: FDA-Public Use
  Company Number: None

PATIENT
  Age: 27 Year
  Sex: Female
  Weight: 70.3075 kg

DRUGS (1)
  1. DEPAKOTE [Suspect]
     Dosage: 500 2 A DAY

REACTIONS (5)
  - DYSPNOEA [None]
  - NASAL CONGESTION [None]
  - WEIGHT INCREASED [None]
  - NAUSEA [None]
  - RETCHING [None]
